FAERS Safety Report 8377583-2 (Version None)
Quarter: 2012Q2

REPORT INFORMATION
  Report Type: 
  Country: None (occurrence: None)
  Receive Date: 20120522
  Receipt Date: 20120518
  Transmission Date: 20120825
  Serious: No
  Sender: FDA-Public Use
  Company Number: US-TEVA-339038USA

PATIENT
  Sex: Female
  Weight: 50.394 kg

DRUGS (3)
  1. MULTI-VITAMIN [Concomitant]
     Indication: SUPPLEMENTATION THERAPY
  2. PLAN B ONE-STEP [Suspect]
     Indication: POST COITAL CONTRACEPTION
     Dosage: 1.5 MILLIGRAM;
     Route: 048
     Dates: start: 20120505, end: 20120505
  3. IRON [Concomitant]
     Indication: SUPPLEMENTATION THERAPY

REACTIONS (5)
  - MENSTRUATION IRREGULAR [None]
  - HEADACHE [None]
  - NAUSEA [None]
  - BACK PAIN [None]
  - PELVIC PAIN [None]
